FAERS Safety Report 9124501 (Version 2)
Quarter: 2013Q2

REPORT INFORMATION
  Report Type: Spontaneous
  Country: IT (occurrence: IT)
  Receive Date: 20130116
  Receipt Date: 20130405
  Transmission Date: 20140414
  Serious: Yes (Death, Other)
  Sender: FDA-Public Use
  Company Number: PHHY2013IT003532

PATIENT
  Sex: Female

DRUGS (2)
  1. ZOMETA [Suspect]
     Indication: PLASMA CELL MYELOMA
     Dosage: 4 MG, QMO
     Route: 042
     Dates: start: 20030401, end: 20050501
  2. AREDIA [Suspect]
     Indication: PLASMA CELL MYELOMA
     Dosage: 90 MG, QMO
     Route: 042
     Dates: start: 20001115, end: 20030319

REACTIONS (2)
  - Osteonecrosis of jaw [Fatal]
  - General physical health deterioration [Unknown]
